FAERS Safety Report 19700558 (Version 4)
Quarter: 2022Q1

REPORT INFORMATION
  Report Type: Report from Study
  Country: CA (occurrence: CA)
  Receive Date: 20210813
  Receipt Date: 20220307
  Transmission Date: 20220423
  Serious: Yes (Other)
  Sender: FDA-Public Use
  Company Number: CA-BAUSCH-BL-2021-016861

PATIENT

DRUGS (11)
  1. CONTRAVE [Suspect]
     Active Substance: BUPROPION HYDROCHLORIDE\NALTREXONE HYDROCHLORIDE
     Indication: Weight control
     Dosage: 90/8 MILLIGRAM,1 TAB Q AM
     Route: 048
     Dates: start: 20210503, end: 202105
  2. CONTRAVE [Suspect]
     Active Substance: BUPROPION HYDROCHLORIDE\NALTREXONE HYDROCHLORIDE
     Dosage: 90/8 MILLIGRAM (1 DOSAGE FORMS, 1 IN 12 HR)
     Route: 048
     Dates: start: 202105, end: 202105
  3. CONTRAVE [Suspect]
     Active Substance: BUPROPION HYDROCHLORIDE\NALTREXONE HYDROCHLORIDE
     Dosage: 90/8 MILLIGRAM, 3 PILLS A DAY (1 IN 12 HR)
     Route: 048
     Dates: start: 202105, end: 202105
  4. CONTRAVE [Suspect]
     Active Substance: BUPROPION HYDROCHLORIDE\NALTREXONE HYDROCHLORIDE
     Dosage: 90/8 MILLIGRAM, 2 IN AM AND 2 IN PM
     Route: 048
     Dates: start: 20210524, end: 20210627
  5. CONTRAVE [Suspect]
     Active Substance: BUPROPION HYDROCHLORIDE\NALTREXONE HYDROCHLORIDE
     Dosage: 90/8 MILLIGRAM, 1 TAB IN MORNING
     Route: 048
     Dates: start: 20210831, end: 20210906
  6. CONTRAVE [Suspect]
     Active Substance: BUPROPION HYDROCHLORIDE\NALTREXONE HYDROCHLORIDE
     Dosage: 90/8 MILLIGRAM, 1 TAB IN MORNING, 1 TAB IN EVENING
     Route: 048
     Dates: start: 20210907, end: 20210913
  7. CONTRAVE [Suspect]
     Active Substance: BUPROPION HYDROCHLORIDE\NALTREXONE HYDROCHLORIDE
     Dosage: 90/8 MILLIGRAM, 2 TAB IN MORNING, 1 TAB IN EVENING (1 IN 12 HR)
     Route: 048
     Dates: start: 20210914, end: 20210927
  8. CONTRAVE [Suspect]
     Active Substance: BUPROPION HYDROCHLORIDE\NALTREXONE HYDROCHLORIDE
     Dosage: 90/8 MILLIGRAM, 2 TAB IN MORNING
     Route: 048
     Dates: start: 20210928
  9. LYRICA [Concomitant]
     Active Substance: PREGABALIN
     Indication: Back pain
     Dosage: 1 IN 1 D
     Route: 048
  10. DICLOFENAC [Concomitant]
     Active Substance: DICLOFENAC
     Indication: Back pain
     Dosage: 1 IN 1 D
     Route: 048
  11. ARTOTEC [Concomitant]
     Active Substance: DICLOFENAC SODIUM\MISOPROSTOL
     Indication: Product used for unknown indication
     Dosage: UNK

REACTIONS (9)
  - Back pain [Unknown]
  - Hunger [Not Recovered/Not Resolved]
  - Decreased appetite [Unknown]
  - Nausea [Unknown]
  - Dizziness [Unknown]
  - Feeling abnormal [Recovering/Resolving]
  - Product prescribing error [Unknown]
  - Product dose omission issue [Unknown]
  - Intentional product use issue [Unknown]

NARRATIVE: CASE EVENT DATE: 20210101
